FAERS Safety Report 8986459 (Version 6)
Quarter: 2013Q1

REPORT INFORMATION
  Report Type: Report from Study
  Country: US (occurrence: US)
  Receive Date: 20121227
  Receipt Date: 20130227
  Transmission Date: 20140127
  Serious: Yes (Other)
  Sender: FDA-Public Use
  Company Number: US-BAYER-2012-132684

PATIENT
  Age: 75 Year
  Sex: Female
  Weight: 78.91 kg

DRUGS (6)
  1. ALBUTEROL [Concomitant]
     Indication: DYSPNOEA
     Dosage: UNK UNK, PRN
  2. STIVARGA [Suspect]
     Indication: COLON CANCER
     Dosage: 160 MG, QD
     Route: 048
     Dates: start: 20121128, end: 201212
  3. STIVARGA [Suspect]
     Indication: COLON CANCER
     Dosage: 120 MG, QD (3 TABLETS)
     Route: 048
     Dates: start: 201212
  4. DILTIAZEM ER [Concomitant]
     Indication: HYPERTENSION
     Dosage: 120 MG, 1 TABLET QD
  5. VITAMIN D3 [Concomitant]
     Indication: PROPHYLAXIS
     Dosage: 1000 MG, 1 TABLET QD
  6. ADVAIR [Concomitant]
     Indication: DYSPNOEA
     Dosage: 1 PUFF A DAY, PRN

REACTIONS (16)
  - Erythema [Not Recovered/Not Resolved]
  - Blister [Recovered/Resolved]
  - Abasia [Not Recovered/Not Resolved]
  - Pain in extremity [Not Recovered/Not Resolved]
  - Pain in extremity [None]
  - Burning sensation [None]
  - Hypoaesthesia [None]
  - Skin discolouration [None]
  - Blister [None]
  - Burning sensation [None]
  - Dry skin [None]
  - Skin exfoliation [Not Recovered/Not Resolved]
  - Musculoskeletal stiffness [None]
  - Muscle spasms [None]
  - Headache [None]
  - Dysphonia [None]
